FAERS Safety Report 5728592-0 (Version None)
Quarter: 2008Q2

REPORT INFORMATION
  Report Type: 
  Country: None (occurrence: None)
  Receive Date: 20080502
  Receipt Date: 20080502
  Transmission Date: 20081010
  Serious: Yes (Other)
  Sender: FDA-Public Use
  Company Number: None

PATIENT
  Age: 59 Year
  Sex: Male
  Weight: 97.5234 kg

DRUGS (2)
  1. DIGITEK 0.125 MG BERTEK [Suspect]
     Indication: CARDIAC PACEMAKER MALFUNCTION
     Dosage: 3 TABLETS A DAY PO
     Route: 048
     Dates: start: 20061005, end: 20080430
  2. DIGITEK 0.125 MG BERTEK [Suspect]

REACTIONS (7)
  - ABDOMINAL PAIN [None]
  - ACTIVITIES OF DAILY LIVING IMPAIRED [None]
  - HYPOTENSION [None]
  - LETHARGY [None]
  - MALAISE [None]
  - NAUSEA [None]
  - VOMITING [None]
